FAERS Safety Report 4575597-1 (Version None)
Quarter: 2005Q1

REPORT INFORMATION
  Report Type: 
  Country: None (occurrence: None)
  Receive Date: 20050128
  Receipt Date: 20050128
  Transmission Date: 20050727
  Serious: Yes (Hospitalization)
  Sender: FDA-Public Use
  Company Number: None

PATIENT
  Age: 34 Year
  Sex: Female
  Weight: 68.0396 kg

DRUGS (1)
  1. NAPROXEN [Suspect]
     Indication: DYSMENORRHOEA
     Dosage: 375 MG 2X/DAY
     Dates: start: 20040215, end: 20040218

REACTIONS (8)
  - ABDOMINAL PAIN [None]
  - CHROMATURIA [None]
  - DEFORMITY [None]
  - FATIGUE [None]
  - GILBERT'S SYNDROME [None]
  - INFLUENZA LIKE ILLNESS [None]
  - JAUNDICE [None]
  - MOVEMENT DISORDER [None]
